FAERS Safety Report 17578833 (Version 1)
Quarter: 2020Q1

REPORT INFORMATION
  Report Type: Spontaneous
  Country: US (occurrence: US)
  Receive Date: 20200325
  Receipt Date: 20200325
  Transmission Date: 20200409
  Serious: No
  Sender: FDA-Public Use
  Company Number: NVSC2020US082413

PATIENT

DRUGS (2)
  1. OSELTAMIVIR [Suspect]
     Active Substance: OSELTAMIVIR
     Indication: INFLUENZA
     Dosage: UNK
     Route: 065
  2. SANDIMMUNE [Suspect]
     Active Substance: CYCLOSPORINE
     Indication: COLITIS
     Dosage: UNK
     Route: 065

REACTIONS (1)
  - Influenza [Recovered/Resolved]
